FAERS Safety Report 8418289-0 (Version None)
Quarter: 2012Q2

REPORT INFORMATION
  Report Type: 
  Country: None (occurrence: None)
  Receive Date: 20120607
  Receipt Date: 20120601
  Transmission Date: 20120825
  Serious: Yes (Hospitalization)
  Sender: FDA-Public Use
  Company Number: US-BAYER-2011-052323

PATIENT
  Age: 29 Year
  Sex: Female
  Weight: 72.562 kg

DRUGS (33)
  1. AMOXICILLIN AND CLAVULANATE POTASSIUM [Concomitant]
     Dosage: 875 MG, BID
     Route: 048
     Dates: start: 20090415
  2. BISMUTH SUBSALICYLATE [Concomitant]
     Dosage: UNK
     Dates: start: 20050727
  3. CHLORDIAZEPOXIDE W/CLIDINIUM [Concomitant]
     Indication: MUSCLE SPASMS
  4. ATIVAN [Concomitant]
     Dosage: 1 MG, UNK
     Route: 042
     Dates: start: 20090728
  5. YASMIN [Suspect]
     Dosage: UNK
     Dates: start: 20050101, end: 20090101
  6. COLACE [Concomitant]
     Dosage: 100 MG, BID
     Route: 048
     Dates: start: 20080703
  7. METHOTREXATE [Concomitant]
     Dosage: 2.5 MG, UNK
     Dates: start: 20090423
  8. MORPHINE [Concomitant]
  9. XANAX [Concomitant]
  10. PROMETHAZINE [Concomitant]
     Indication: NAUSEA
     Dosage: UNK
     Dates: start: 20080703
  11. HUMIRA [Concomitant]
     Indication: PSORIASIS
     Dosage: UNK
     Dates: start: 20090101, end: 20090601
  12. SERTRALINE HYDROCHLORIDE [Concomitant]
     Indication: ANXIETY
     Dosage: UNK UNK, QD
     Route: 048
     Dates: start: 20080703
  13. LEVAQUIN [Concomitant]
     Dosage: 500 MG, QD
     Route: 048
     Dates: start: 20090514
  14. DOXYCYCLINE [Concomitant]
     Dosage: 100 MG, BID
     Route: 048
     Dates: start: 20090519
  15. DICYCLOMINE [Concomitant]
     Indication: ABDOMINAL PAIN
     Dosage: 20 MG, QID
     Route: 048
     Dates: start: 20090728
  16. LEVSIN PB [Concomitant]
     Indication: ABDOMINAL RIGIDITY
     Dosage: UNK UNK, PRN
     Route: 060
     Dates: start: 20090730
  17. PROVIGIL [Concomitant]
     Dosage: 200 MG, QD
     Route: 048
     Dates: start: 20090809
  18. DROSPIRENONE AND ETHINYL ESTRADIOL [Suspect]
     Dosage: UNK
     Dates: start: 20081001, end: 20090901
  19. MIRALAX [Concomitant]
     Dosage: 17 G, PRN
     Route: 048
     Dates: start: 20080703
  20. BACTROBAN [Concomitant]
     Dosage: 2 %, QD
     Route: 061
     Dates: start: 20080905
  21. POTASSIUM CHLORIDE [Concomitant]
     Dosage: 20 MEQ, UNK
     Route: 048
     Dates: start: 20090728
  22. PERCOCET [Concomitant]
     Indication: PAIN
     Dosage: UNK UNK, PRN
     Route: 048
     Dates: start: 20090809
  23. PHENTERMINE [Concomitant]
     Dosage: 37.5 MG, UNK
     Route: 048
     Dates: start: 20090114, end: 20090401
  24. PROMETHAZINE [Concomitant]
     Indication: VOMITING
  25. ZOFRAN [Concomitant]
     Dosage: 8 MG, UNK
     Route: 042
     Dates: start: 20090728
  26. DEMEROL [Concomitant]
     Dosage: 100 MG, UNK
     Route: 030
     Dates: start: 20090728
  27. HYDROCODONE BITARTRATE AND ACETAMINOPHEN [Concomitant]
     Indication: PAIN
     Dosage: UNK UNK, PRN
     Route: 048
     Dates: start: 20080703
  28. GENTAMICIN SULFATE [Concomitant]
     Dosage: 0.1 %, UNK
     Route: 061
     Dates: start: 20090415
  29. CHLORDIAZEPOXIDE W/CLIDINIUM [Concomitant]
     Indication: ABDOMINAL DISCOMFORT
     Dosage: UNK UNK, QID
     Route: 048
     Dates: start: 20090728
  30. DROSPIRENONE AND ETHINYL ESTRADIOL [Suspect]
     Indication: CONTRACEPTION
     Dosage: UNK
     Dates: start: 20020101, end: 20080801
  31. TESTOSTERONE [Concomitant]
     Indication: SEXUAL DYSFUNCTION
     Dosage: UNK
     Route: 061
     Dates: start: 20090604
  32. HYDROCODONE W/IBUPROFEN [Concomitant]
     Dosage: UNK
     Route: 048
     Dates: start: 20090608
  33. MULTI-VITAMIN [Concomitant]
     Dosage: UNK
     Dates: start: 20090806

REACTIONS (48)
  - GALLBLADDER DISORDER [None]
  - CAESAREAN SECTION [None]
  - FIBRIN D DIMER INCREASED [None]
  - PSORIATIC ARTHROPATHY [None]
  - PELVIC ADHESIONS [None]
  - ATTENTION DEFICIT/HYPERACTIVITY DISORDER [None]
  - RASH [None]
  - CHOLECYSTITIS CHRONIC [None]
  - ANXIETY [None]
  - INJURY [None]
  - DYSPEPSIA [None]
  - FATIGUE [None]
  - WEIGHT INCREASED [None]
  - BILIARY DYSKINESIA [None]
  - ATELECTASIS [None]
  - INFARCTION [None]
  - SPLENOMEGALY [None]
  - PAIN [None]
  - EMOTIONAL DISORDER [None]
  - PANIC ATTACK [None]
  - CYSTITIS [None]
  - IRRITABLE BOWEL SYNDROME [None]
  - PAIN IN EXTREMITY [None]
  - PULMONARY EMBOLISM [None]
  - DYSPAREUNIA [None]
  - LIBIDO DISORDER [None]
  - PREGNANCY ON ORAL CONTRACEPTIVE [None]
  - PSYCHOLOGICAL TRAUMA [None]
  - DISEASE RECURRENCE [None]
  - DEPRESSION [None]
  - URINARY TRACT INFECTION [None]
  - ASPARTATE AMINOTRANSFERASE INCREASED [None]
  - SARCOIDOSIS [None]
  - MATERNAL EXPOSURE DURING PREGNANCY [None]
  - OVARIAN CYST [None]
  - DIZZINESS [None]
  - POST PROCEDURAL COMPLICATION [None]
  - INCISIONAL HERNIA [None]
  - CONSTIPATION [None]
  - ALANINE AMINOTRANSFERASE INCREASED [None]
  - CHOLELITHIASIS [None]
  - INFLAMMATION [None]
  - PELVIC INFLAMMATORY DISEASE [None]
  - PARAESTHESIA [None]
  - ENDOMETRIOSIS [None]
  - HAEMORRHAGIC OVARIAN CYST [None]
  - PREMENSTRUAL SYNDROME [None]
  - INTERNATIONAL NORMALISED RATIO DECREASED [None]
